FAERS Safety Report 16382811 (Version 7)
Quarter: 2020Q1

REPORT INFORMATION
  Report Type: Report from Study
  Country: None (occurrence: JP)
  Receive Date: 20190603
  Receipt Date: 20200130
  Transmission Date: 20200409
  Serious: Yes (Hospitalization, Other)
  Sender: FDA-Public Use
  Company Number: JP-ABBVIE-19S-087-2785090-00

PATIENT
  Age: 48 Year
  Sex: Female

DRUGS (2)
  1. DUODOPA [Suspect]
     Active Substance: CARBIDOPA\LEVODOPA
     Dosage: DECREASED DOSE
     Route: 050
     Dates: start: 2019
  2. DUODOPA [Suspect]
     Active Substance: CARBIDOPA\LEVODOPA
     Indication: PARKINSON^S DISEASE
     Route: 050
     Dates: start: 20190320, end: 2019

REACTIONS (16)
  - Uterine leiomyoma [Unknown]
  - Herpes zoster [Unknown]
  - Stoma site haemorrhage [Unknown]
  - Bezoar [Recovered/Resolved]
  - Device colour issue [Unknown]
  - Blood pressure increased [Recovered/Resolved]
  - Dyskinesia [Recovering/Resolving]
  - Hypersensitivity [Unknown]
  - Stoma site pain [Not Recovered/Not Resolved]
  - Stoma site hypergranulation [Unknown]
  - Anxiety [Unknown]
  - Stoma site discharge [Not Recovered/Not Resolved]
  - Stoma site extravasation [Unknown]
  - Stoma site erythema [Unknown]
  - Insomnia [Unknown]
  - Ovarian disorder [Recovering/Resolving]

NARRATIVE: CASE EVENT DATE: 2019
